FAERS Safety Report 7257964-0 (Version None)
Quarter: 2011Q1

REPORT INFORMATION
  Report Type: 
  Country: None (occurrence: None)
  Receive Date: 20110129
  Receipt Date: 20100614
  Transmission Date: 20110831
  Serious: No
  Sender: FDA-Public Use
  Company Number: US-ABBOTT-10P-163-0651463-00

PATIENT
  Sex: Female
  Weight: 60.836 kg

DRUGS (7)
  1. HUMIRA [Suspect]
     Dates: start: 20100412
  2. ENTECORT [Concomitant]
  3. MULTI-VITAMIN [Concomitant]
     Indication: PRODUCT USED FOR UNKNOWN INDICATION
  4. HUMIRA [Suspect]
     Dosage: ONCE
     Dates: start: 20100301, end: 20100301
  5. ENTECORT [Concomitant]
  6. HUMIRA [Suspect]
     Indication: CROHN'S DISEASE
     Dosage: ONCE
     Dates: start: 20100301, end: 20100301
  7. ENTECORT [Concomitant]
     Indication: CROHN'S DISEASE

REACTIONS (1)
  - STOMATITIS [None]
